FAERS Safety Report 16334831 (Version 1)
Quarter: 2019Q2

REPORT INFORMATION
  Report Type: Spontaneous
  Country: ES (occurrence: ES)
  Receive Date: 20190520
  Receipt Date: 20190520
  Transmission Date: 20190711
  Serious: Yes (Hospitalization)
  Sender: FDA-Public Use
  Company Number: ES-ELI_LILLY_AND_COMPANY-ES201905003389

PATIENT
  Age: 71 Year
  Sex: Female

DRUGS (5)
  1. OLUMIANT [Suspect]
     Active Substance: BARICITINIB
     Indication: RHEUMATOID ARTHRITIS
     Dosage: 1 COMP/24 HORAS
     Route: 048
     Dates: start: 20181213, end: 20181225
  2. LOSARTAN ACOST [Concomitant]
     Indication: HYPERTENSION
     Dosage: 1 COMP/24 H
     Route: 048
     Dates: start: 20181108
  3. OMEPRAZOL ABDRUG [Concomitant]
     Indication: OESOPHAGITIS
     Dosage: 1 COMP/24 H
     Route: 048
     Dates: start: 20181111
  4. PROLIA [Concomitant]
     Active Substance: DENOSUMAB
     Indication: RHEUMATOID ARTHRITIS
     Dosage: 1 INY/ 180 D?AS
     Route: 058
     Dates: start: 20151111
  5. EUTIROX [Concomitant]
     Active Substance: LEVOTHYROXINE SODIUM
     Indication: HYPOTHYROIDISM
     Dosage: 1 COMP/24 H
     Route: 048
     Dates: start: 20171111

REACTIONS (1)
  - Diarrhoea [Recovered/Resolved]

NARRATIVE: CASE EVENT DATE: 20181215
